FAERS Safety Report 18073451 (Version 2)
Quarter: 2021Q3

REPORT INFORMATION
  Report Type: Spontaneous
  Country: US (occurrence: US)
  Receive Date: 20200727
  Receipt Date: 20210930
  Transmission Date: 20211014
  Serious: Yes (Other)
  Sender: FDA-Public Use
  Company Number: US-TAKEDA-2020TUS032155

PATIENT
  Age: 58 Year
  Sex: Male
  Weight: 168 kg

DRUGS (1)
  1. NINLARO [Suspect]
     Active Substance: IXAZOMIB CITRATE
     Indication: PLASMA CELL MYELOMA
     Dosage: 4 MILLIGRAM
     Route: 048
     Dates: start: 20190703

REACTIONS (2)
  - Osteomyelitis [Unknown]
  - Palpitations [Unknown]

NARRATIVE: CASE EVENT DATE: 20200723
